FAERS Safety Report 8912740 (Version 1)
Quarter: 2012Q4

REPORT INFORMATION
  Report Type: 
  Country: FR (occurrence: FR)
  Receive Date: 20121115
  Receipt Date: 20121115
  Transmission Date: 20130627
  Serious: Yes (Life-Threatening, Hospitalization)
  Sender: FDA-Public Use
  Company Number: FR-ASTRAZENECA-2012SE86089

PATIENT

DRUGS (7)
  1. INEXIUM [Suspect]
     Route: 048
  2. DIGOXIN ^NATIVELLE^ [Suspect]
     Route: 048
     Dates: end: 20120915
  3. CORTANCYL [Suspect]
     Route: 048
  4. COVERSYL [Suspect]
     Route: 048
  5. KARDEGIC [Suspect]
     Route: 048
  6. FUROSEMIDE [Suspect]
     Route: 048
  7. PREVISCAN [Suspect]
     Route: 048

REACTIONS (9)
  - Bradycardia [Recovered/Resolved]
  - Renal failure chronic [Unknown]
  - Cardiac failure [Unknown]
  - Anaemia [Unknown]
  - Nausea [Recovered/Resolved]
  - Dizziness [Recovered/Resolved]
  - Abdominal pain [Recovered/Resolved]
  - Overdose [Unknown]
  - Medication error [Recovered/Resolved]
